FAERS Safety Report 23636924 (Version 1)
Quarter: 2024Q1

REPORT INFORMATION
  Report Type: Spontaneous
  Country: AR (occurrence: AR)
  Receive Date: 20240315
  Receipt Date: 20240315
  Transmission Date: 20240410
  Serious: Yes (Other)
  Sender: FDA-Public Use
  Company Number: AR-PFIZER INC-PV202400035464

PATIENT
  Age: 75 Year
  Sex: Male

DRUGS (1)
  1. VIZIMPRO [Suspect]
     Active Substance: DACOMITINIB
     Indication: Lung cancer metastatic
     Dosage: 15 MG, 1X/DAY
     Dates: start: 20221101, end: 20240223

REACTIONS (2)
  - Pulmonary oedema [Not Recovered/Not Resolved]
  - Neoplasm progression [Unknown]
